FAERS Safety Report 7433010-0 (Version None)
Quarter: 2011Q2

REPORT INFORMATION
  Report Type: 
  Country: None (occurrence: None)
  Receive Date: 20110422
  Receipt Date: 20110418
  Transmission Date: 20111010
  Serious: Yes (Death)
  Sender: FDA-Public Use
  Company Number: US-B.I. PHARMACEUTICALS,INC./RIDGEFIELD-2011-BP-11022BP

PATIENT
  Age: 80 Year
  Sex: Female

DRUGS (4)
  1. M.V.I. [Concomitant]
  2. PRADAXA [Suspect]
     Indication: ATRIAL FIBRILLATION
     Dosage: 300 MG
     Dates: start: 20110323, end: 20110325
  3. PRADAXA [Suspect]
     Indication: HYPERTENSION
  4. DIOVAN [Concomitant]
     Dosage: 80 MG

REACTIONS (6)
  - CARDIOMYOPATHY [None]
  - GASTROINTESTINAL HAEMORRHAGE [None]
  - OCCULT BLOOD POSITIVE [None]
  - CARDIAC FAILURE CONGESTIVE [None]
  - MELAENA [None]
  - HAEMOGLOBIN DECREASED [None]
